FAERS Safety Report 7267926-5 (Version None)
Quarter: 2011Q1

REPORT INFORMATION
  Report Type: 
  Country: None (occurrence: None)
  Receive Date: 20110120
  Receipt Date: 20110105
  Transmission Date: 20110831
  Serious: Yes (Disabling)
  Sender: FDA-Public Use
  Company Number: 011811

PATIENT
  Age: 54 Year
  Sex: Male
  Weight: 120 kg

DRUGS (6)
  1. SILDENAFIL CITRATE [Concomitant]
  2. PRAVASTATIN [Concomitant]
  3. ATENOLOL [Concomitant]
  4. ENALAPRIL MALEATE [Concomitant]
  5. PLETAL [Suspect]
     Indication: PERIPHERAL ARTERIAL OCCLUSIVE DISEASE
     Dosage: 100 MG, BID, ORAL
     Route: 048
     Dates: start: 20100714, end: 20100831
  6. ASPIRIN [Concomitant]

REACTIONS (8)
  - JOINT SWELLING [None]
  - HYPERHIDROSIS [None]
  - LOSS OF LIBIDO [None]
  - GYNAECOMASTIA [None]
  - WEIGHT INCREASED [None]
  - DYSPNOEA [None]
  - BLOOD TRIGLYCERIDES INCREASED [None]
  - BREAST PAIN [None]
